FAERS Safety Report 14019538 (Version 3)
Quarter: 2017Q4

REPORT INFORMATION
  Report Type: Spontaneous
  Country: JP (occurrence: JP)
  Receive Date: 20170928
  Receipt Date: 20171121
  Transmission Date: 20180321
  Serious: Yes (Hospitalization)
  Sender: FDA-Public Use
  Company Number: JP-ALLERGAN-1754549US

PATIENT
  Age: 73 Year
  Sex: Male
  Weight: 62 kg

DRUGS (13)
  1. MEMANTINE HCL - BP [Suspect]
     Active Substance: MEMANTINE
     Indication: ALCOHOL INDUCED PERSISTING DEMENTIA
     Dosage: 5 MG, BID
     Route: 048
     Dates: start: 20170721, end: 20170817
  2. MAGNESIUM OXIDE. [Suspect]
     Active Substance: MAGNESIUM OXIDE
     Dosage: 500 MG, BID
     Route: 048
     Dates: start: 20170322, end: 20170404
  3. RISPERDAL [Concomitant]
     Active Substance: RISPERIDONE
     Indication: PRODUCT USED FOR UNKNOWN INDICATION
     Dosage: UNK
     Route: 065
     Dates: start: 20170203, end: 20170703
  4. SENNARIDE [Suspect]
     Active Substance: SENNOSIDES A AND B
     Dosage: 36 MG, QD
     Route: 048
     Dates: start: 20170628, end: 20170727
  5. MEMANTINE HCL - BP [Suspect]
     Active Substance: MEMANTINE
     Indication: MIXED DEMENTIA
     Dosage: 10 MG, BID
     Route: 048
     Dates: start: 20170818
  6. MAGNESIUM OXIDE. [Suspect]
     Active Substance: MAGNESIUM OXIDE
     Dosage: 500 MG, BID
     Route: 048
     Dates: start: 20170510
  7. AMITIZA [Suspect]
     Active Substance: LUBIPROSTONE
     Indication: CONSTIPATION
     Dosage: 24 MG, BID
     Route: 048
     Dates: start: 20170405
  8. SENNARIDE [Suspect]
     Active Substance: SENNOSIDES A AND B
     Indication: CONSTIPATION
     Dosage: 24 MG, QD
     Route: 048
     Dates: start: 20170607, end: 20170627
  9. RISPERDAL [Concomitant]
     Active Substance: RISPERIDONE
     Dosage: UNK
     Route: 065
     Dates: start: 20170721, end: 20170817
  10. MEMANTINE HCL - BP [Suspect]
     Active Substance: MEMANTINE
     Indication: DEMENTIA ALZHEIMER^S TYPE
     Dosage: 5 MG, QD
     Route: 048
     Dates: start: 20170531, end: 20170720
  11. MAGNESIUM OXIDE. [Suspect]
     Active Substance: MAGNESIUM OXIDE
     Indication: CONSTIPATION
     Dosage: 330 MG, BID
     Route: 048
     Dates: start: 20170308, end: 20170311
  12. SENNARIDE [Suspect]
     Active Substance: SENNOSIDES A AND B
     Dosage: 48 MG, QD
     Route: 048
     Dates: start: 20170728
  13. ROZEREM [Concomitant]
     Active Substance: RAMELTEON
     Indication: PRODUCT USED FOR UNKNOWN INDICATION
     Dosage: UNK
     Route: 065
     Dates: start: 20170203

REACTIONS (6)
  - Apathy [Unknown]
  - Interstitial lung disease [Recovered/Resolved with Sequelae]
  - Pyrexia [Unknown]
  - Depressed level of consciousness [Unknown]
  - Chills [Unknown]
  - Hypotension [Recovered/Resolved]

NARRATIVE: CASE EVENT DATE: 20170817
